FAERS Safety Report 6722409-3 (Version None)
Quarter: 2010Q2

REPORT INFORMATION
  Report Type: 
  Country: None (occurrence: None)
  Receive Date: 20100512
  Receipt Date: 20100510
  Transmission Date: 20101027
  Serious: Yes (Life-Threatening, Hospitalization)
  Sender: FDA-Public Use
  Company Number: JP-ROXANE LABORATORIES, INC.-2010-RO-00554RO

PATIENT
  Age: 60 Year
  Sex: Male

DRUGS (9)
  1. TRIAZOLAM [Suspect]
  2. TRIAZOLAM [Suspect]
     Dosage: 0.125 MG
  3. EPERISONE [Suspect]
  4. EPERISONE [Suspect]
     Dosage: 150 MG
  5. NIFEDIPINE [Suspect]
     Dosage: 40 MG
  6. ATROPINE [Suspect]
     Indication: BRADYCARDIA
     Dosage: 0.5 MG
     Route: 042
  7. ATROPINE [Suspect]
     Indication: HYPOTENSION
  8. DOPAMINE HCL [Suspect]
     Indication: BRADYCARDIA
     Route: 042
  9. DOPAMINE HCL [Suspect]
     Indication: HYPOTENSION

REACTIONS (6)
  - ELECTROCARDIOGRAM QT PROLONGED [None]
  - HYPOTENSION [None]
  - INTENTIONAL OVERDOSE [None]
  - SINUS BRADYCARDIA [None]
  - SUICIDE ATTEMPT [None]
  - TORSADE DE POINTES [None]
